FAERS Safety Report 24186127 (Version 1)
Quarter: 2024Q3

REPORT INFORMATION
  Report Type: Report from Study
  Country: US (occurrence: US)
  Receive Date: 20240808
  Receipt Date: 20240808
  Transmission Date: 20241016
  Serious: Yes (Other)
  Sender: ABBVIE
  Company Number: US-ABBVIE-5865245

PATIENT
  Sex: Female

DRUGS (1)
  1. HUMIRA [Suspect]
     Active Substance: ADALIMUMAB
     Indication: Rheumatoid arthritis
     Dosage: CITRATE FREE, LAST ADMIN DATE-2024
     Route: 058
     Dates: start: 20240326

REACTIONS (2)
  - Incisional hernia [Unknown]
  - Surgery [Unknown]

NARRATIVE: CASE EVENT DATE: 20240101
